FAERS Safety Report 4986316-9 (Version None)
Quarter: 2006Q2

REPORT INFORMATION
  Report Type: 
  Country: None (occurrence: None)
  Receive Date: 20060424
  Receipt Date: 20060410
  Transmission Date: 20061013
  Serious: Yes (Hospitalization)
  Sender: FDA-Public Use
  Company Number: T200600181

PATIENT
  Age: 63 Year
  Sex: Female
  Weight: 99.8 kg

DRUGS (20)
  1. METHADOSE [Suspect]
     Indication: PAIN
     Dosage: 40 MG, TID, ORAL
     Route: 048
  2. CEP-25608() [Suspect]
     Indication: BREAKTHROUGH PAIN
     Dosage: 200 UG, PM, BUCCAL
     Route: 002
     Dates: start: 20051212
  3. AMITRIPTYLINE (AMITRIPTYLINE) [Suspect]
     Indication: SLEEP DISORDER
     Dosage: 100 MG, QHS, ORAL
     Route: 048
     Dates: start: 20060310
  4. LORTAB /00607101/(HYDROCODONE BITARTRATE, PARACETAMOL) [Suspect]
     Indication: PAIN
     Dosage: 1 TAB/CAP, QID, ORAL
     Route: 048
  5. LASIX /00032601/ (FUROSEMIDE) [Concomitant]
  6. POTASSIUM [Concomitant]
  7. ASPIRIN /00002701/ (ACETYLSALICYLIC ACID) [Concomitant]
  8. CELEXA [Concomitant]
  9. GLYBURIDE [Concomitant]
  10. COLACE (DOCUSATE SODIUM) [Concomitant]
  11. LISINOPRIL [Concomitant]
  12. TEGRETOL [Concomitant]
  13. AVANDIA [Concomitant]
  14. LANTUS [Concomitant]
  15. BUSPAR [Concomitant]
  16. NORVASC /00972401/ (AMLODIPINE) [Concomitant]
  17. ROBAXIN /00047901/ (METHOCARBAMOL) [Concomitant]
  18. NORCO [Concomitant]
  19. NEURONTIN [Concomitant]
  20. CLONAZEPAM [Concomitant]

REACTIONS (7)
  - BLOOD POTASSIUM INCREASED [None]
  - BLOOD SODIUM DECREASED [None]
  - LETHARGY [None]
  - LISTLESS [None]
  - MENTAL STATUS CHANGES [None]
  - MIOSIS [None]
  - SOMNOLENCE [None]
